FAERS Safety Report 7069539-7 (Version None)
Quarter: 2010Q4

REPORT INFORMATION
  Report Type: 
  Country: None (occurrence: None)
  Receive Date: 20101028
  Receipt Date: 20100212
  Transmission Date: 20110411
  Serious: No
  Sender: FDA-Public Use
  Company Number: US-WYE-H13576110

PATIENT
  Sex: Female

DRUGS (2)
  1. EFFEXOR [Suspect]
     Dosage: UNKNOWN
  2. EFFEXOR [Suspect]
     Dosage: RESTARTED AT UNKNOWN DOSE A COUPLE DAYS LATER

REACTIONS (2)
  - DIZZINESS [None]
  - VOMITING [None]
